FAERS Safety Report 19083705 (Version 2)
Quarter: 2021Q2

REPORT INFORMATION
  Report Type: Spontaneous
  Country: US (occurrence: US)
  Receive Date: 20210401
  Receipt Date: 20210512
  Transmission Date: 20210717
  Serious: No
  Sender: FDA-Public Use
  Company Number: US-MERZ PHARMACEUTICALS GMBH-21-01059

PATIENT
  Age: 66 Year
  Sex: Male
  Weight: 100.7 kg

DRUGS (10)
  1. XEOMIN [Suspect]
     Active Substance: INCOBOTULINUMTOXINA
     Indication: MUSCLE SPASTICITY
     Route: 030
     Dates: start: 20210315, end: 20210315
  2. DYSPORT [Concomitant]
     Active Substance: ABOBOTULINUMTOXINA
  3. HORSE SERUM [Concomitant]
  4. MORPHINE [Concomitant]
     Active Substance: MORPHINE
  5. LOVENOX [Concomitant]
     Active Substance: ENOXAPARIN SODIUM
  6. IODINE. [Concomitant]
     Active Substance: IODINE
  7. XEOMIN [Suspect]
     Active Substance: INCOBOTULINUMTOXINA
     Route: 030
  8. BETADINE [Concomitant]
     Active Substance: POVIDONE-IODINE
  9. KEFLEX [Concomitant]
     Active Substance: CEPHALEXIN
  10. FRAGMIN [Concomitant]
     Active Substance: DALTEPARIN SODIUM

REACTIONS (4)
  - Asthenia [Recovered/Resolved]
  - Off label use [Unknown]
  - Feeling of body temperature change [Recovered/Resolved]
  - Injection site pain [Recovered/Resolved]

NARRATIVE: CASE EVENT DATE: 20210315
